FAERS Safety Report 8935602 (Version 2)
Quarter: 2013Q1

REPORT INFORMATION
  Report Type: Spontaneous
  Country: US (occurrence: US)
  Receive Date: 20121130
  Receipt Date: 20130211
  Transmission Date: 20140127
  Serious: Yes (Hospitalization, Other)
  Sender: FDA-Public Use
  Company Number: US-PFIZER INC-2012299530

PATIENT
  Age: 69 Year
  Sex: Female
  Weight: 60 kg

DRUGS (2)
  1. TORISEL [Suspect]
     Indication: RENAL CELL CARCINOMA
     Dosage: 20 MG, WEEKLY
     Route: 042
     Dates: start: 2011
  2. TORISEL [Suspect]
     Dosage: 20 MG, WEEKLY
     Route: 042
     Dates: start: 20121127, end: 20121127

REACTIONS (8)
  - Loss of consciousness [Recovered/Resolved]
  - Convulsion [Unknown]
  - Dizziness [Unknown]
  - Feeling hot [Unknown]
  - Hypertension [Unknown]
  - Dyspnoea [Recovered/Resolved]
  - Nausea [Unknown]
  - Infusion related reaction [Unknown]
